FAERS Safety Report 12441134 (Version 1)
Quarter: 2016Q2

REPORT INFORMATION
  Report Type: Spontaneous
  Country: FR (occurrence: FR)
  Receive Date: 20160607
  Receipt Date: 20160607
  Transmission Date: 20160815
  Serious: Yes (Other)
  Sender: FDA-Public Use
  Company Number: FR-009507513-1606FRA001718

PATIENT
  Age: 74 Year
  Sex: Female

DRUGS (2)
  1. EZETROL [Suspect]
     Active Substance: EZETIMIBE
     Indication: HYPERCHOLESTEROLAEMIA
     Dosage: UNK
     Dates: start: 2014, end: 20150902
  2. EZETROL [Suspect]
     Active Substance: EZETIMIBE
     Dosage: 0.5 DF, QD
     Route: 048
     Dates: start: 20160602

REACTIONS (6)
  - Intervertebral disc protrusion [Unknown]
  - Drug prescribing error [Unknown]
  - Pain in extremity [Unknown]
  - Muscle spasms [Unknown]
  - Accidental underdose [Unknown]
  - Wrong technique in product usage process [Unknown]

NARRATIVE: CASE EVENT DATE: 2015
